FAERS Safety Report 21163541 (Version 1)
Quarter: 2022Q3

REPORT INFORMATION
  Report Type: Report from Study
  Country: US (occurrence: US)
  Receive Date: 20220802
  Receipt Date: 20220802
  Transmission Date: 20221027
  Serious: Yes (Other)
  Sender: FDA-Public Use
  Company Number: US-SEATTLE GENETICS-2021SGN04711

PATIENT
  Age: 58 Year
  Sex: Female
  Weight: 89.4 kg

DRUGS (5)
  1. TUCATINIB [Suspect]
     Active Substance: TUCATINIB
     Indication: Invasive breast carcinoma
     Dosage: 300 MG, BID
     Route: 048
     Dates: start: 20210618, end: 20210621
  2. TUCATINIB [Suspect]
     Active Substance: TUCATINIB
     Indication: Invasive breast carcinoma
     Dosage: 300 MG, BID
     Route: 048
     Dates: start: 20210618, end: 20210621
  3. TUCATINIB [Suspect]
     Active Substance: TUCATINIB
     Dosage: 250 MG BID
     Route: 048
  4. TUCATINIB [Suspect]
     Active Substance: TUCATINIB
     Dosage: 250 MG BID
     Route: 048
  5. ADO-TRASTUZUMAB EMTANSINE [Suspect]
     Active Substance: ADO-TRASTUZUMAB EMTANSINE
     Indication: Invasive breast carcinoma
     Dosage: 321.8 MG, Q3WEEKS
     Route: 042
     Dates: start: 20210618, end: 20210618

REACTIONS (2)
  - Platelet count decreased [Recovered/Resolved]
  - Fatigue [Recovered/Resolved]

NARRATIVE: CASE EVENT DATE: 20210619
